FAERS Safety Report 11779197 (Version 1)
Quarter: 2015Q4

REPORT INFORMATION
  Report Type: Spontaneous
  Country: CA (occurrence: CA)
  Receive Date: 20151125
  Receipt Date: 20151125
  Transmission Date: 20160304
  Serious: Yes (Death)
  Sender: FDA-Public Use
  Company Number: CA-TEVA-612278ACC

PATIENT
  Age: 27 Year
  Sex: Female

DRUGS (1)
  1. DOXEPIN [Suspect]
     Active Substance: DOXEPIN
     Indication: ANXIETY
     Route: 065

REACTIONS (2)
  - Cardiac arrest [Fatal]
  - Seizure [Fatal]
